FAERS Safety Report 5185046-0 (Version None)
Quarter: 2006Q4

REPORT INFORMATION
  Report Type: 
  Country: None (occurrence: None)
  Receive Date: 20061220
  Receipt Date: 20060524
  Transmission Date: 20070319
  Serious: No
  Sender: FDA-Public Use
  Company Number: US-GLAXOSMITHKLINE-A0606733A

PATIENT
  Age: 60 Year

DRUGS (3)
  1. NICODERM CQ [Suspect]
     Dates: start: 20060523
  2. ANTIDEPRESSANT [Concomitant]
  3. UNKNOWN FOR ANXIETY [Concomitant]

REACTIONS (3)
  - ABNORMAL DREAMS [None]
  - FATIGUE [None]
  - INSOMNIA [None]
